FAERS Safety Report 9889541 (Version 1)
Quarter: 2014Q1

REPORT INFORMATION
  Report Type: Spontaneous
  Country: US (occurrence: US)
  Receive Date: 20140211
  Receipt Date: 20140211
  Transmission Date: 20141002
  Serious: Yes (Death)
  Sender: FDA-Public Use
  Company Number: US-DENDREON CORPORATION-2014PROUSA03489

PATIENT
  Age: 58 Year
  Sex: Male
  Weight: 90.7 kg

DRUGS (11)
  1. PROVENGE [Suspect]
     Indication: PROSTATE CANCER METASTATIC
     Dosage: 250 ML, SINGLE
     Route: 042
     Dates: start: 20130222, end: 20130222
  2. PROVENGE [Suspect]
     Dosage: 250 ML, SINGLE
     Route: 042
     Dates: start: 20130308, end: 20130308
  3. PROVENGE [Suspect]
     Dosage: 250 ML, SINGLE
     Route: 042
     Dates: start: 20130322, end: 20130322
  4. LUPRON [Concomitant]
     Indication: PROSTATE CANCER
     Dosage: 30 MG, UNK
     Dates: start: 20131115, end: 20130805
  5. ADDERALL [Concomitant]
     Indication: ANXIETY
  6. CLONAZEPAM [Concomitant]
     Indication: ANXIETY
     Dosage: 2 MG, UNK
  7. TAMSULOSIN [Concomitant]
     Indication: BENIGN PROSTATIC HYPERPLASIA
     Dosage: 0.4 MG, UNK
  8. TAMSULOSIN [Concomitant]
     Indication: PROSTATE CANCER
  9. MELOXICAM [Concomitant]
     Indication: OSTEOARTHRITIS
     Dosage: 7.5 MG, UNK
  10. SIMVASTATIN [Concomitant]
     Indication: HYPERLIPIDAEMIA
     Dosage: 40 MG, UNK
  11. ABIRATERONE [Concomitant]
     Indication: PROSTATE CANCER
     Dosage: UNK
     Dates: start: 201307

REACTIONS (1)
  - Completed suicide [Fatal]
